FAERS Safety Report 7288882-X (Version None)
Quarter: 2011Q1

REPORT INFORMATION
  Report Type: 
  Country: None (occurrence: None)
  Receive Date: 20110211
  Receipt Date: 20110201
  Transmission Date: 20110831
  Serious: Yes (Other)
  Sender: FDA-Public Use
  Company Number: JP-JNJFOC-20101208601

PATIENT
  Age: 76 Year
  Sex: Female

DRUGS (4)
  1. REMICADE [Suspect]
     Route: 042
  2. METHOTREXATE [Suspect]
     Indication: MULTICENTRIC RETICULOHISTIOCYTOSIS
  3. PREDNISOLONE [Suspect]
     Indication: MULTICENTRIC RETICULOHISTIOCYTOSIS
  4. REMICADE [Suspect]
     Indication: MULTICENTRIC RETICULOHISTIOCYTOSIS
     Route: 042

REACTIONS (1)
  - PNEUMOCYSTIS JIROVECI PNEUMONIA [None]
